FAERS Safety Report 10189624 (Version 1)
Quarter: 2014Q2

REPORT INFORMATION
  Report Type: Spontaneous
  Country: IT (occurrence: IT)
  Receive Date: 20140522
  Receipt Date: 20140522
  Transmission Date: 20141212
  Serious: Yes (Hospitalization)
  Sender: FDA-Public Use
  Company Number: IT-GLAXOSMITHKLINE-B0995060A

PATIENT
  Age: 76 Year
  Sex: Male

DRUGS (9)
  1. ALKERAN [Suspect]
     Indication: PLASMA CELL MYELOMA
     Dosage: 2MG UNKNOWN
     Route: 048
     Dates: start: 20140212, end: 20140215
  2. BACTRIM [Suspect]
     Indication: CHEMOTHERAPY
     Route: 048
     Dates: start: 20140210, end: 20140310
  3. LEVOXACIN [Suspect]
     Indication: CHEMOTHERAPY
     Dosage: 500MG PER DAY
     Route: 048
     Dates: start: 20140210, end: 20140220
  4. ACICLOVIR [Suspect]
     Indication: CHEMOTHERAPY
     Dosage: 800MG PER DAY
     Route: 048
     Dates: start: 20140210, end: 20140316
  5. FILGRASTIM [Suspect]
     Indication: CHEMOTHERAPY
     Dosage: 30IU PER DAY
     Route: 058
     Dates: start: 20140217, end: 20140221
  6. BORTEZOMIB [Suspect]
     Indication: PRODUCT USED FOR UNKNOWN INDICATION
     Dosage: 2.4MG PER DAY
     Dates: start: 20140210, end: 20140313
  7. LASIX [Concomitant]
     Indication: PRODUCT USED FOR UNKNOWN INDICATION
     Dosage: 25MG PER DAY
  8. CARDIOASPIRIN [Concomitant]
     Indication: PRODUCT USED FOR UNKNOWN INDICATION
     Dosage: 100MG PER DAY
  9. RAMIPRIL [Concomitant]
     Indication: PRODUCT USED FOR UNKNOWN INDICATION
     Dosage: 10MG PER DAY

REACTIONS (5)
  - Erythema [Recovering/Resolving]
  - Pruritus [Recovering/Resolving]
  - Rash [Recovering/Resolving]
  - Periorbital oedema [Recovering/Resolving]
  - Adverse drug reaction [Recovering/Resolving]
